FAERS Safety Report 20106265 (Version 2)
Quarter: 2022Q2

REPORT INFORMATION
  Report Type: Spontaneous
  Country: CA (occurrence: None)
  Receive Date: 20211124
  Receipt Date: 20220429
  Transmission Date: 20220721
  Serious: Yes (Other)
  Sender: FDA-Public Use
  Company Number: CA-ROCHE-2960560

PATIENT
  Age: 60 Year
  Sex: Female

DRUGS (3)
  1. RITUXIMAB [Suspect]
     Active Substance: RITUXIMAB
     Indication: Rheumatoid arthritis
     Route: 041
  2. ACETAMINOPHEN [Concomitant]
     Active Substance: ACETAMINOPHEN
     Indication: Product used for unknown indication
     Route: 048
  3. DIPHENHYDRAMINE [Concomitant]
     Active Substance: DIPHENHYDRAMINE
     Indication: Product used for unknown indication
     Route: 048

REACTIONS (7)
  - Arthralgia [Recovered/Resolved]
  - Blood pressure systolic increased [Recovered/Resolved]
  - Cough [Recovered/Resolved]
  - Hypersensitivity [Recovered/Resolved]
  - Joint swelling [Recovered/Resolved]
  - Throat irritation [Recovered/Resolved]
  - Drug ineffective [Unknown]
